FAERS Safety Report 7564692-0 (Version None)
Quarter: 2011Q2

REPORT INFORMATION
  Report Type: 
  Country: None (occurrence: None)
  Receive Date: 20110622
  Receipt Date: 20100917
  Transmission Date: 20111010
  Serious: Yes (Other)
  Sender: FDA-Public Use
  Company Number: US-MYLANLABS-2010S1016298

PATIENT
  Age: 74 Year
  Sex: Male

DRUGS (17)
  1. STALEVO 100 [Concomitant]
     Dosage: Q 6PM, 9PM
  2. MIDRIN [Concomitant]
     Dosage: Q 6AM, 12PM
  3. GABAPENTIN [Concomitant]
     Dosage: Q 12PM, 3PM, 9PM
  4. REQUIP [Concomitant]
     Dosage: XL Q 6AM
  5. COLACE [Concomitant]
     Dosage: Q 9AM, 6PM
  6. SINEMET [Concomitant]
     Dosage: 50MG/200MG CR
  7. EXELON [Concomitant]
     Dosage: 2 PATCHES DAILY
     Route: 062
  8. NAMENDA [Concomitant]
     Dosage: Q 9AM, 6PM
  9. CYMBALTA [Concomitant]
     Dosage: Q 9AM
  10. NEUPOGEN [Concomitant]
     Route: 058
  11. CLOZAPINE [Suspect]
     Dates: start: 20100902
  12. STALEVO 100 [Concomitant]
     Dosage: Q 6AM, 9AM, 12PM, 3PM
  13. MIRALAX [Concomitant]
  14. GABAPENTIN [Concomitant]
     Dosage: Q 6AM, 9AM, 6PM
  15. CLOZAPINE [Suspect]
     Indication: DELUSION
     Dates: start: 20100705, end: 20100901
  16. CLOZAPINE [Suspect]
     Dates: start: 20100902
  17. CLOZAPINE [Suspect]
     Dates: start: 20100705, end: 20100901

REACTIONS (2)
  - GRANULOCYTOPENIA [None]
  - LEUKOPENIA [None]
